FAERS Safety Report 4387518-5 (Version None)
Quarter: 2004Q2

REPORT INFORMATION
  Report Type: 
  Country: None (occurrence: None)
  Receive Date: 20040623
  Receipt Date: 20040608
  Transmission Date: 20050107
  Serious: Yes (Other)
  Sender: FDA-Public Use
  Company Number: US_0406103583

PATIENT
  Age: 52 Year
  Sex: Female

DRUGS (4)
  1. EVISTA [Suspect]
     Dates: start: 19980101
  2. ACTONEL [Concomitant]
  3. CALCIUM [Concomitant]
  4. VITAMIN D [Concomitant]

REACTIONS (2)
  - MEDICAL DEVICE IMPLANTATION [None]
  - SURGERY [None]
